FAERS Safety Report 6346886-5 (Version None)
Quarter: 2009Q3

REPORT INFORMATION
  Report Type: 
  Country: None (occurrence: None)
  Receive Date: 20090908
  Receipt Date: 20090908
  Transmission Date: 20100115
  Serious: Yes (Disabling)
  Sender: FDA-Public Use
  Company Number: None

PATIENT
  Sex: Female
  Weight: 127.0072 kg

DRUGS (3)
  1. XENICAL [Suspect]
     Indication: BACK PAIN
     Dosage: 3X 120MGS 3X DAY MOUTH
     Route: 048
     Dates: start: 19920101
  2. XENICAL [Suspect]
     Indication: GASTROINTESTINAL DISORDER
     Dosage: 3X 120MGS 3X DAY MOUTH
     Route: 048
     Dates: start: 19920101
  3. XENICAL [Suspect]
     Indication: OBESITY
     Dosage: 3X 120MGS 3X DAY MOUTH
     Route: 048
     Dates: start: 19920101

REACTIONS (5)
  - ABDOMINAL PAIN [None]
  - DIARRHOEA [None]
  - FAECAL INCONTINENCE [None]
  - FREQUENT BOWEL MOVEMENTS [None]
  - STEATORRHOEA [None]
